FAERS Safety Report 5789666-1 (Version None)
Quarter: 2008Q2

REPORT INFORMATION
  Report Type: 
  Country: None (occurrence: None)
  Receive Date: 20080626
  Receipt Date: 20080401
  Transmission Date: 20081010
  Serious: No
  Sender: FDA-Public Use
  Company Number: A0708899A

PATIENT
  Age: 36 Year
  Sex: Female

DRUGS (2)
  1. ALLI [Suspect]
     Indication: CHANGE OF BOWEL HABIT
     Route: 048
  2. ADIPEX-P [Concomitant]

REACTIONS (21)
  - ACTIVITIES OF DAILY LIVING IMPAIRED [None]
  - ADVERSE DRUG REACTION [None]
  - ARTHRALGIA [None]
  - ASTHENIA [None]
  - BACK PAIN [None]
  - CHROMATURIA [None]
  - CONSTIPATION [None]
  - DYSURIA [None]
  - ERYTHEMA [None]
  - FATIGUE [None]
  - FEELING HOT [None]
  - HYPERSENSITIVITY [None]
  - JOINT STIFFNESS [None]
  - JOINT SWELLING [None]
  - MUSCULOSKELETAL STIFFNESS [None]
  - MYALGIA [None]
  - OEDEMA [None]
  - PHARYNGOLARYNGEAL PAIN [None]
  - PYREXIA [None]
  - RASH [None]
  - SKIN LESION [None]
